FAERS Safety Report 15998530 (Version 1)
Quarter: 2019Q1

REPORT INFORMATION
  Report Type: Report from Study
  Country: IT (occurrence: IT)
  Receive Date: 20190223
  Receipt Date: 20190223
  Transmission Date: 20190418
  Serious: Yes (Other)
  Sender: FDA-Public Use
  Company Number: IT-ACCORD-108467

PATIENT
  Age: 73 Year
  Sex: Male

DRUGS (4)
  1. CALCIUM LEVOFOLINATE [Concomitant]
     Active Substance: LEVOLEUCOVORIN CALCIUM
  2. PARACETAMOL [Concomitant]
     Active Substance: ACETAMINOPHEN
  3. FLUOROURACIL. [Suspect]
     Active Substance: FLUOROURACIL
     Indication: PRODUCT USED FOR UNKNOWN INDICATION
  4. AVASTIN [Suspect]
     Active Substance: BEVACIZUMAB
     Indication: RECTAL ADENOCARCINOMA
     Route: 042
     Dates: start: 20170523

REACTIONS (6)
  - Abdominal pain upper [Unknown]
  - Asthenia [Unknown]
  - Pyrexia [Unknown]
  - Decreased appetite [Unknown]
  - Dizziness [Unknown]
  - Cough [Unknown]

NARRATIVE: CASE EVENT DATE: 20180718
